FAERS Safety Report 16038923 (Version 2)
Quarter: 2019Q1

REPORT INFORMATION
  Report Type: Report from Study
  Country: CO (occurrence: CO)
  Receive Date: 20190306
  Receipt Date: 20190321
  Transmission Date: 20190418
  Serious: Yes (Other)
  Sender: FDA-Public Use
  Company Number: PHHY2017CO126893

PATIENT
  Age: 37 Year
  Sex: Female
  Weight: 66 kg

DRUGS (4)
  1. TRAMADOL. [Suspect]
     Active Substance: TRAMADOL
     Indication: CHEST PAIN
     Route: 065
  2. GLIVEC [Suspect]
     Active Substance: IMATINIB MESYLATE
     Indication: CHRONIC MYELOID LEUKAEMIA
     Dosage: 400 MG, QD
     Route: 048
     Dates: start: 2011
  3. IMATINIB. [Suspect]
     Active Substance: IMATINIB MESYLATE
     Indication: CHRONIC MYELOID LEUKAEMIA
     Dosage: UNK
     Route: 065
     Dates: start: 2014
  4. GLIVEC [Suspect]
     Active Substance: IMATINIB MESYLATE
     Dosage: 400 MG, QD
     Route: 048
     Dates: start: 20110630

REACTIONS (20)
  - Muscle spasms [Unknown]
  - Fear [Unknown]
  - Agitation [Recovered/Resolved]
  - Asthenia [Unknown]
  - Eye pain [Recovered/Resolved]
  - Dizziness [Unknown]
  - Product dispensing error [Unknown]
  - Chronic myeloid leukaemia [Unknown]
  - Chest pain [Not Recovered/Not Resolved]
  - Feeling abnormal [Recovered/Resolved]
  - Diarrhoea [Unknown]
  - Oropharyngeal neoplasm [Unknown]
  - Gastritis [Unknown]
  - Headache [Recovered/Resolved]
  - Malignant neoplasm progression [Unknown]
  - Mobility decreased [Unknown]
  - Fatigue [Recovered/Resolved]
  - Fatigue [Unknown]
  - Migraine [Unknown]
  - Drug hypersensitivity [Unknown]

NARRATIVE: CASE EVENT DATE: 2011
